FAERS Safety Report 21488793 (Version 1)
Quarter: 2022Q4

REPORT INFORMATION
  Report Type: Spontaneous
  Country: US (occurrence: US)
  Receive Date: 20221021
  Receipt Date: 20221021
  Transmission Date: 20230112
  Serious: Yes (Hospitalization, Other)
  Sender: FDA-Public Use
  Company Number: US-APOTEX-2022AP014371

PATIENT
  Age: 71 Year
  Sex: Female

DRUGS (1)
  1. CARBAMAZEPINE [Suspect]
     Active Substance: CARBAMAZEPINE
     Indication: Epilepsy
     Dosage: UNK
     Route: 065

REACTIONS (4)
  - Lupus pneumonitis [Recovering/Resolving]
  - Tubulointerstitial nephritis [Recovering/Resolving]
  - Lupus-like syndrome [Recovering/Resolving]
  - Acute kidney injury [Recovering/Resolving]
